FAERS Safety Report 4932853-2 (Version None)
Quarter: 2006Q1

REPORT INFORMATION
  Report Type: 
  Country: None (occurrence: None)
  Receive Date: 20060302
  Receipt Date: 20060302
  Transmission Date: 20060701
  Serious: No
  Sender: FDA-Public Use
  Company Number: None

PATIENT
  Age: 83 Year
  Sex: Male
  Weight: 75 kg

DRUGS (2)
  1. TEQUIN [Suspect]
     Indication: PYELONEPHRITIS
     Dosage: 400 MG Q24 IV
     Route: 042
     Dates: start: 20060116
  2. TEQUIN [Suspect]
     Indication: PYELONEPHRITIS
     Dosage: 400 MG Q24 IV
     Route: 042
     Dates: start: 20060117

REACTIONS (4)
  - BLOOD GLUCOSE DECREASED [None]
  - DEPRESSED LEVEL OF CONSCIOUSNESS [None]
  - HYPERHIDROSIS [None]
  - TREMOR [None]
